FAERS Safety Report 16732999 (Version 1)
Quarter: 2019Q3

REPORT INFORMATION
  Report Type: Spontaneous
  Country: US (occurrence: US)
  Receive Date: 20190823
  Receipt Date: 20190823
  Transmission Date: 20191005
  Serious: No
  Sender: FDA-Public Use
  Company Number: US-APOTEX-2019AP019384

PATIENT
  Sex: Male

DRUGS (3)
  1. VIMPAT [Concomitant]
     Active Substance: LACOSAMIDE
     Indication: SEIZURE PROPHYLAXIS
     Dosage: UNK
     Route: 065
  2. LAMICTAL [Concomitant]
     Active Substance: LAMOTRIGINE
     Indication: SEIZURE PROPHYLAXIS
     Dosage: UNK
     Route: 065
  3. MODAFINIL TABLETS USP [Suspect]
     Active Substance: MODAFINIL
     Indication: DISTURBANCE IN ATTENTION
     Dosage: HALF TABLET TO 1 TABLET DAILY
     Route: 065

REACTIONS (3)
  - Tremor [Recovered/Resolved]
  - Drug ineffective [Unknown]
  - Disturbance in attention [Unknown]

NARRATIVE: CASE EVENT DATE: 20190722
